FAERS Safety Report 5780070-9 (Version None)
Quarter: 2008Q2

REPORT INFORMATION
  Report Type: 
  Country: None (occurrence: None)
  Receive Date: 20080620
  Receipt Date: 20080612
  Transmission Date: 20081010
  Serious: Yes (Hospitalization)
  Sender: FDA-Public Use
  Company Number: DE-WYE-G01676608

PATIENT
  Age: 23 Year
  Sex: Male
  Weight: 60 kg

DRUGS (2)
  1. RAPAMUNE [Suspect]
     Indication: PROPHYLAXIS AGAINST TRANSPLANT REJECTION
     Route: 048
     Dates: start: 20050922, end: 20051003
  2. MYCOPHENOLATE MOFETIL [Concomitant]
     Indication: PROPHYLAXIS AGAINST TRANSPLANT REJECTION
     Route: 048
     Dates: start: 20050909, end: 20050910

REACTIONS (2)
  - ABDOMINAL WOUND DEHISCENCE [None]
  - KIDNEY TRANSPLANT REJECTION [None]
